FAERS Safety Report 13585057 (Version 4)
Quarter: 2019Q1

REPORT INFORMATION
  Report Type: Report from Study
  Country: JP (occurrence: JP)
  Receive Date: 20170526
  Receipt Date: 20190122
  Transmission Date: 20190417
  Serious: Yes (Other)
  Sender: FDA-Public Use
  Company Number: JP-VIIV HEALTHCARE LIMITED-JP2017JPN076917

PATIENT
  Age: 6 Decade
  Sex: Male

DRUGS (9)
  1. EPIVIR [Suspect]
     Active Substance: LAMIVUDINE
     Dosage: 25 MG, 1D
     Route: 048
     Dates: start: 20180222
  2. ISENTRESS [Suspect]
     Active Substance: RALTEGRAVIR POTASSIUM
     Indication: HIV INFECTION
     Dosage: 800 MG, 1D
     Route: 048
     Dates: start: 20141020, end: 20170226
  3. DOLUTEGRAVIR [Suspect]
     Active Substance: DOLUTEGRAVIR
     Indication: HIV INFECTION
     Dosage: 50 MG, 1D
     Route: 048
     Dates: start: 20170227
  4. COMBIVIR [Suspect]
     Active Substance: LAMIVUDINE\ZIDOVUDINE
     Indication: HIV INFECTION
     Dosage: 2 DF, 1D
     Route: 048
     Dates: start: 20141020, end: 20150610
  5. EPIVIR [Suspect]
     Active Substance: LAMIVUDINE
     Indication: HIV INFECTION
     Dosage: 100 MG, 1D
     Route: 048
     Dates: start: 20150611, end: 20170226
  6. EPIVIR [Suspect]
     Active Substance: LAMIVUDINE
     Dosage: 25 MG, 1D
     Route: 048
     Dates: start: 20170227, end: 20170331
  7. EPIVIR [Suspect]
     Active Substance: LAMIVUDINE
     Dosage: 50 MG, 1D
     Route: 048
     Dates: start: 20170401, end: 20180221
  8. ZIAGEN [Suspect]
     Active Substance: ABACAVIR SULFATE
     Indication: HIV INFECTION
     Dosage: 600 MG, QD
     Route: 048
     Dates: start: 20150611
  9. TRUVADA [Concomitant]
     Active Substance: EMTRICITABINE\TENOFOVIR DISOPROXIL FUMARATE
     Indication: HIV INFECTION
     Dosage: 1 DF, 1D
     Dates: start: 20141020

REACTIONS (1)
  - Renal disorder [Not Recovered/Not Resolved]

NARRATIVE: CASE EVENT DATE: 20150611
